FAERS Safety Report 10308656 (Version 1)
Quarter: 2014Q3

REPORT INFORMATION
  Report Type: Spontaneous
  Country: US (occurrence: None)
  Receive Date: 20140715
  Receipt Date: 20140715
  Transmission Date: 20150326
  Serious: Yes (Life-Threatening, Hospitalization)
  Sender: FDA-Public Use
  Company Number: None

PATIENT
  Age: 62 Year
  Sex: Male
  Weight: 97.2 kg

DRUGS (1)
  1. RIVAROXABAN [Suspect]
     Active Substance: RIVAROXABAN
     Indication: PULMONARY EMBOLISM
     Route: 048
     Dates: start: 20140326, end: 20140404

REACTIONS (7)
  - White blood cell count increased [None]
  - Vomiting [None]
  - Nausea [None]
  - Hepatic enzyme increased [None]
  - Fatigue [None]
  - Platelet count increased [None]
  - Hyperhidrosis [None]

NARRATIVE: CASE EVENT DATE: 20140403
